FAERS Safety Report 9974073 (Version 1)
Quarter: 2014Q1

REPORT INFORMATION
  Report Type: Report from Study
  Country: US (occurrence: US)
  Receive Date: 20140306
  Receipt Date: 20140306
  Transmission Date: 20141002
  Serious: No
  Sender: FDA-Public Use
  Company Number: US-ABBVIE-13P-163-1158069-00

PATIENT
  Age: 40 Year
  Sex: Male
  Weight: 81.72 kg

DRUGS (6)
  1. HUMIRA [Suspect]
     Indication: CROHN^S DISEASE
     Dates: start: 2008, end: 201309
  2. MERCAPTOPURINE [Concomitant]
     Indication: CROHN^S DISEASE
  3. PROZAC [Concomitant]
     Indication: DEPRESSION
  4. CLONOPIN [Concomitant]
     Indication: ANXIETY
  5. IRON [Concomitant]
     Indication: IRON DEFICIENCY ANAEMIA
  6. ELAVIL [Concomitant]
     Indication: DIARRHOEA

REACTIONS (3)
  - Abdominal pain [Not Recovered/Not Resolved]
  - Diarrhoea [Not Recovered/Not Resolved]
  - Nausea [Not Recovered/Not Resolved]
